FAERS Safety Report 24872481 (Version 1)
Quarter: 2025Q1

REPORT INFORMATION
  Report Type: Other
  Country: GB (occurrence: GB)
  Receive Date: 20250122
  Receipt Date: 20250122
  Transmission Date: 20250409
  Serious: Yes (Other)
  Sender: STRIDES
  Company Number: None

PATIENT
  Sex: Female

DRUGS (2)
  1. FLUOXETINE [Suspect]
     Active Substance: FLUOXETINE HYDROCHLORIDE
     Indication: Product used for unknown indication
     Route: 065
  2. MAGNESIUM [Concomitant]
     Active Substance: MAGNESIUM
     Indication: Adverse drug reaction
     Route: 065

REACTIONS (8)
  - Nightmare [Unknown]
  - Alcohol interaction [Not Recovered/Not Resolved]
  - Energy increased [Not Recovered/Not Resolved]
  - Night sweats [Recovered/Resolved]
  - Weight decreased [Unknown]
  - Loss of libido [Not Recovered/Not Resolved]
  - Mania [Unknown]
  - Insomnia [Unknown]
